FAERS Safety Report 10272031 (Version 2)
Quarter: 2014Q3

REPORT INFORMATION
  Report Type: Spontaneous
  Country: GR (occurrence: GR)
  Receive Date: 20140702
  Receipt Date: 20140728
  Transmission Date: 20150326
  Serious: Yes (Other)
  Sender: FDA-Public Use
  Company Number: PHHY2014GR079890

PATIENT
  Age: 76 Year
  Sex: Female

DRUGS (8)
  1. THYRO 4 [Concomitant]
     Dosage: UNK
  2. DILATREND [Concomitant]
     Active Substance: CARVEDILOL
     Dosage: UNK
  3. OSPEN [Concomitant]
     Active Substance: PENICILLIN V
     Dosage: UNK
  4. ZYLORIC [Concomitant]
     Active Substance: ALLOPURINOL
     Dosage: UNK
  5. SINTROM [Suspect]
     Active Substance: ACENOCOUMAROL
  6. PRITOR [Concomitant]
     Active Substance: TELMISARTAN
     Dosage: UNK
  7. DESFERAL [Suspect]
     Active Substance: DEFEROXAMINE MESYLATE
     Dosage: UNK
     Dates: start: 2000
  8. DESFERAL [Suspect]
     Active Substance: DEFEROXAMINE MESYLATE
     Dosage: UNK

REACTIONS (7)
  - Fundoscopy abnormal [Recovered/Resolved]
  - Dyspnoea [Recovered/Resolved]
  - Eye disorder [Recovered/Resolved]
  - Headache [Recovered/Resolved]
  - Deafness [Recovered/Resolved]
  - Malaise [Recovered/Resolved]
  - Mood altered [Recovered/Resolved]
